FAERS Safety Report 25993714 (Version 1)
Quarter: 2025Q4

REPORT INFORMATION
  Report Type: Spontaneous
  Country: US (occurrence: US)
  Receive Date: 20251104
  Receipt Date: 20251104
  Transmission Date: 20260117
  Serious: Yes (Other)
  Sender: COOPERSURGICAL
  Company Number: US-COOPERSURGICAL, INC.-2025CPS007610

PATIENT
  Age: 33 Year
  Sex: Female
  Weight: 79.365 kg

DRUGS (2)
  1. PARAGARD T 380A [Suspect]
     Active Substance: COPPER
     Indication: Contraception
     Dosage: UNK
     Route: 015
     Dates: start: 20120721, end: 20221207
  2. MIRENA [Suspect]
     Active Substance: LEVONORGESTREL
     Indication: Contraception
     Dosage: UNK
     Route: 015
     Dates: start: 20221207

REACTIONS (18)
  - Reproductive complication associated with device [Unknown]
  - Device breakage [Recovered/Resolved]
  - Foreign body in reproductive tract [Recovered/Resolved]
  - Complication of device removal [Recovered/Resolved]
  - Embedded device [Recovered/Resolved]
  - Stress [Recovered/Resolved]
  - Panic reaction [Recovered/Resolved]
  - Emotional distress [Recovered/Resolved]
  - Fatigue [Not Recovered/Not Resolved]
  - Fear [Unknown]
  - Anxiety [Unknown]
  - Heavy menstrual bleeding [Recovered/Resolved]
  - Dysmenorrhoea [Recovered/Resolved]
  - Pelvic pain [Recovered/Resolved]
  - Procedural pain [Recovered/Resolved]
  - Vaginal infection [Unknown]
  - Device use issue [Unknown]
  - Off label use [Unknown]

NARRATIVE: CASE EVENT DATE: 20120821
